FAERS Safety Report 4463182-1 (Version None)
Quarter: 2004Q3

REPORT INFORMATION
  Report Type: 
  Country: None (occurrence: None)
  Receive Date: 20040928
  Receipt Date: 20040914
  Transmission Date: 20050211
  Serious: No
  Sender: FDA-Public Use
  Company Number: 2004SE05095

PATIENT
  Age: 85 Year
  Sex: Male

DRUGS (2)
  1. OMEPRAL [Suspect]
     Indication: GASTRIC ULCER HAEMORRHAGE
  2. OMEPRAZOLE [Suspect]
     Dosage: 20 MG QD PO
     Route: 048

REACTIONS (2)
  - LEUKOPENIA [None]
  - PYREXIA [None]
